FAERS Safety Report 6366511-7 (Version None)
Quarter: 2009Q3

REPORT INFORMATION
  Report Type: 
  Country: None (occurrence: None)
  Receive Date: 20090921
  Receipt Date: 20090914
  Transmission Date: 20100115
  Serious: Yes (Life-Threatening, Hospitalization)
  Sender: FDA-Public Use
  Company Number: VN-BAYER-200931741GPV

PATIENT
  Age: 46 Year
  Sex: Female

DRUGS (9)
  1. CIPRO [Suspect]
     Indication: INFECTION
     Dosage: AS USED: 200 MG/ML  TOTAL DAILY DOSE: 400 MG/ML
     Route: 041
     Dates: start: 20090901, end: 20090909
  2. CEFOLACTAM [Concomitant]
     Indication: INFECTION
     Dosage: TOTAL DAILY DOSE: 3 G
     Route: 042
     Dates: start: 20090901, end: 20090909
  3. METHYNOL [Concomitant]
     Indication: STILL'S DISEASE ADULT ONSET
     Dosage: AS USED: 40 MG/ML  TOTAL DAILY DOSE: 40 MG/ML
     Route: 042
     Dates: start: 20090824
  4. MIACALCIN [Concomitant]
     Indication: OSTEOPOROSIS
     Dosage: TOTAL DAILY DOSE: 100 IU  UNIT DOSE: 100 IU
     Route: 030
     Dates: start: 20090824
  5. TYLENOL (CAPLET) [Concomitant]
     Indication: ANALGESIC THERAPY
     Dosage: TOTAL DAILY DOSE: 1800 MG  UNIT DOSE: 600 MG
     Route: 048
     Dates: start: 20090824
  6. ATRODA [Concomitant]
     Indication: OSTEOARTHRITIS
     Dosage: AS USED: 50 MG  UNIT DOSE: 50 MG
     Route: 048
     Dates: start: 20090824
  7. LYPANTHYL [Concomitant]
     Indication: BLOOD CHOLESTEROL ABNORMAL
     Dosage: TOTAL DAILY DOSE: 200 MG  UNIT DOSE: 200 MG
     Route: 048
     Dates: start: 20090824
  8. TARDYFERON B9 [Concomitant]
     Indication: ANAEMIA
     Route: 048
     Dates: start: 20090824
  9. NEXIUM [Concomitant]
     Indication: GASTROOESOPHAGEAL REFLUX DISEASE
     Route: 048
     Dates: start: 20090824

REACTIONS (8)
  - BLOOD PRESSURE DECREASED [None]
  - CHILLS [None]
  - CONVULSION [None]
  - CYANOSIS [None]
  - LIVIDITY [None]
  - PALLOR [None]
  - PULSE ABNORMAL [None]
  - SHOCK [None]
